FAERS Safety Report 14897072 (Version 1)
Quarter: 2018Q2

REPORT INFORMATION
  Report Type: Spontaneous
  Country: US (occurrence: US)
  Receive Date: 20180427
  Receipt Date: 20180427
  Transmission Date: 20180711
  Serious: Yes (Other)
  Sender: FDA-Public Use
  Company Number: None

PATIENT
  Age: 58 Year
  Sex: Male
  Weight: 179.1 kg

DRUGS (19)
  1. INLYTA [Suspect]
     Active Substance: AXITINIB
     Indication: RENAL CANCER
     Route: 048
     Dates: start: 20180321, end: 20180427
  2. OXYCODONE [Concomitant]
     Active Substance: OXYCODONE
  3. VICTOZA [Concomitant]
     Active Substance: LIRAGLUTIDE
  4. LINZESS [Concomitant]
     Active Substance: LINACLOTIDE
  5. METOPROLOL. [Concomitant]
     Active Substance: METOPROLOL
  6. HUMALOG [Concomitant]
     Active Substance: INSULIN LISPRO
  7. RANITIDINE. [Concomitant]
     Active Substance: RANITIDINE
  8. MAGNESIUM [Concomitant]
     Active Substance: MAGNESIUM
  9. MORPHINE [Concomitant]
     Active Substance: MORPHINE
  10. HYDRALAZINE [Concomitant]
     Active Substance: HYDRALAZINE HYDROCHLORIDE
  11. OMEPRAZOLE. [Concomitant]
     Active Substance: OMEPRAZOLE
  12. PLAVIX [Concomitant]
     Active Substance: CLOPIDOGREL BISULFATE
  13. SIMVASTATIN. [Concomitant]
     Active Substance: SIMVASTATIN
  14. GABAPENTIN. [Concomitant]
     Active Substance: GABAPENTIN
  15. LEVOTHYROXINE. [Concomitant]
     Active Substance: LEVOTHYROXINE
  16. PROCRIT [Concomitant]
     Active Substance: ERYTHROPOIETIN
  17. TAMSULOSIN [Concomitant]
     Active Substance: TAMSULOSIN
  18. TRESIBA [Concomitant]
     Active Substance: INSULIN DEGLUDEC
  19. ULORIC [Concomitant]
     Active Substance: FEBUXOSTAT

REACTIONS (1)
  - Diarrhoea [None]
